FAERS Safety Report 10715354 (Version 1)
Quarter: 2015Q1

REPORT INFORMATION
  Report Type: Spontaneous
  Country: BR (occurrence: BR)
  Receive Date: 20150116
  Receipt Date: 20150116
  Transmission Date: 20150721
  Serious: Yes (Hospitalization)
  Sender: FDA-Public Use
  Company Number: BR-PFIZER INC-2015013010

PATIENT
  Age: 51 Year
  Sex: Female

DRUGS (4)
  1. COSOPT [Concomitant]
     Active Substance: DORZOLAMIDE HYDROCHLORIDE\TIMOLOL MALEATE
     Indication: GLAUCOMA
     Dosage: UNSPECIFIED DOSE, 2X/DAY
     Dates: start: 2006
  2. HYDROCHLOROTHIAZIDE. [Concomitant]
     Active Substance: HYDROCHLOROTHIAZIDE
     Dosage: 25 MG, 1X/DAY
     Dates: start: 2001
  3. XALATAN [Suspect]
     Active Substance: LATANOPROST
     Indication: GLAUCOMA
     Dosage: ONE DROP EACH EYE (3 ?G), 1X/DAY
     Route: 047
     Dates: start: 2006
  4. LOSARTAN POTASSIUM. [Concomitant]
     Active Substance: LOSARTAN POTASSIUM
     Indication: BLOOD PRESSURE INCREASED
     Dosage: 50 MG, 1X/DAY
     Dates: start: 2001

REACTIONS (3)
  - Gallbladder disorder [Recovered/Resolved]
  - Abdominal pain upper [Recovered/Resolved]
  - Gastroduodenitis [Recovered/Resolved]

NARRATIVE: CASE EVENT DATE: 2010
